FAERS Safety Report 11304628 (Version 1)
Quarter: 2015Q3

REPORT INFORMATION
  Report Type: Spontaneous
  Country: US (occurrence: US)
  Receive Date: 20150723
  Receipt Date: 20150723
  Transmission Date: 20151125
  Serious: No
  Sender: FDA-Public Use
  Company Number: US-JNJFOC-20150111987

PATIENT
  Age: 61 Year
  Sex: Male
  Weight: 86.18 kg

DRUGS (2)
  1. ZYRTEC TABLETS IR 10MG [Suspect]
     Active Substance: CETIRIZINE HYDROCHLORIDE
     Route: 048
  2. ZYRTEC TABLETS IR 10MG [Suspect]
     Active Substance: CETIRIZINE HYDROCHLORIDE
     Indication: SINUS DISORDER
     Dosage: 1 CAPLET, EVERY 12 HOURS
     Route: 048
     Dates: start: 20150114, end: 20150114

REACTIONS (1)
  - Inappropriate schedule of drug administration [Unknown]
